FAERS Safety Report 15365596 (Version 1)
Quarter: 2018Q3

REPORT INFORMATION
  Report Type: Spontaneous
  Country: US (occurrence: US)
  Receive Date: 20180831
  Receipt Date: 20180831
  Transmission Date: 20181010
  Serious: No
  Sender: FDA-Public Use
  Company Number: None

PATIENT
  Age: 66 Year
  Sex: Male
  Weight: 117 kg

DRUGS (5)
  1. CLARITIN [Suspect]
     Active Substance: LORATADINE
     Indication: SEASONAL ALLERGY
     Dosage: ?          QUANTITY:40 TABLET(S);?
     Route: 048
     Dates: start: 20180301, end: 20180330
  2. MAGNESIUM/POTASSIUM [Concomitant]
  3. METOPOLOL [Concomitant]
  4. LOSARTAN. [Concomitant]
     Active Substance: LOSARTAN
  5. NIACIN. [Concomitant]
     Active Substance: NIACIN

REACTIONS (5)
  - Dyspnoea [None]
  - Insomnia [None]
  - Peripheral swelling [None]
  - Atrial fibrillation [None]
  - Fluid retention [None]

NARRATIVE: CASE EVENT DATE: 20180301
